FAERS Safety Report 13797968 (Version 4)
Quarter: 2018Q2

REPORT INFORMATION
  Report Type: Spontaneous
  Country: GB (occurrence: GB)
  Receive Date: 20170727
  Receipt Date: 20180418
  Transmission Date: 20180711
  Serious: Yes (Hospitalization, Other)
  Sender: FDA-Public Use
  Company Number: GB-AUROBINDO-AUR-APL-2017-37388

PATIENT
  Age: 71 Year
  Sex: Female
  Weight: 66.8 kg

DRUGS (24)
  1. SILDENAFIL. [Concomitant]
     Active Substance: SILDENAFIL
     Indication: PULMONARY ARTERIAL HYPERTENSION
     Dosage: 75 MILLIGRAM DAILY;
     Route: 065
     Dates: start: 20140522
  2. NIFEDIPINE. [Suspect]
     Active Substance: NIFEDIPINE
     Indication: HYPERTENSION
     Dosage: 20 MILLIGRAM DAILY;
     Route: 048
     Dates: end: 20150704
  3. OMEPRAZOLE. [Concomitant]
     Active Substance: OMEPRAZOLE
     Indication: PULMONARY ARTERIAL HYPERTENSION
  4. TINZAPARIN [Concomitant]
     Active Substance: TINZAPARIN
     Dosage: 3500 UNITS TOTAL DAILY DOSE
  5. FUROSEMIDE. [Concomitant]
     Active Substance: FUROSEMIDE
     Indication: PULMONARY ARTERIAL HYPERTENSION
     Dosage: 40 MG, QD
     Route: 065
     Dates: start: 20150427
  6. LISINOPRIL. [Suspect]
     Active Substance: LISINOPRIL
     Dosage: 2.5 MILLIGRAM DAILY;
     Route: 048
     Dates: start: 20150708
  7. ALLOPURINOL. [Concomitant]
     Active Substance: ALLOPURINOL
     Indication: GOUT
     Dosage: 100 MILLIGRAM DAILY;
     Route: 065
     Dates: start: 20150601
  8. OMEPRAZOLE. [Concomitant]
     Active Substance: OMEPRAZOLE
     Indication: PROPHYLAXIS
     Dosage: 40 MG, QD
     Route: 065
     Dates: start: 20150219
  9. CEFALEXIN [Concomitant]
     Active Substance: CEPHALEXIN
     Dosage: 125 MILLIGRAM DAILY; ()
  10. TINZAPARIN [Concomitant]
     Active Substance: TINZAPARIN
     Dosage: 3500 UNITS TOTAL DAILY DOSE ()
  11. CEFALEXIN [Concomitant]
     Active Substance: CEPHALEXIN
     Dosage: 125 MILLIGRAM DAILY;
  12. WARFARIN [Concomitant]
     Active Substance: WARFARIN
     Indication: PULMONARY ARTERIAL HYPERTENSION
     Dosage: ()
     Route: 065
     Dates: end: 20150520
  13. LISINOPRIL. [Suspect]
     Active Substance: LISINOPRIL
     Dosage: 10 MILLIGRAM DAILY;
     Route: 048
     Dates: end: 20150704
  14. NAPROXEN. [Suspect]
     Active Substance: NAPROXEN
     Indication: GOUT
     Dosage: 1000 MILLIGRAM DAILY;
     Route: 065
     Dates: start: 20150624, end: 20150703
  15. TREPROSTINIL [Suspect]
     Active Substance: TREPROSTINIL
     Indication: PULMONARY ARTERIAL HYPERTENSION
     Dosage: 13.5 MILLIGRAM DAILY; BLINDED (CODE NOT BROKEN)
     Route: 048
     Dates: start: 20150112
  16. BENDROFLUMETHIAZIDE [Concomitant]
     Active Substance: BENDROFLUMETHIAZIDE
     Indication: HYPERTENSION
     Dosage: 2.5 MILLIGRAM DAILY;
     Route: 065
  17. BENDROFLUMETHIAZIDE [Concomitant]
     Active Substance: BENDROFLUMETHIAZIDE
     Dosage: 2.5 MILLIGRAM DAILY; ()
  18. CEFALEXIN [Concomitant]
     Active Substance: CEPHALEXIN
     Dosage: 125 MILLIGRAM DAILY; ()
  19. BENDROFLUMETHIAZIDE [Concomitant]
     Active Substance: BENDROFLUMETHIAZIDE
     Dosage: 2.5 MILLIGRAM DAILY; ()
  20. CEFALEXIN [Concomitant]
     Active Substance: CEPHALEXIN
     Indication: PROPHYLAXIS
     Dosage: 125 MG, DAILY
     Route: 065
  21. TINZAPARIN [Concomitant]
     Active Substance: TINZAPARIN
     Indication: PROPHYLAXIS
     Dosage: 3500 U,TOTAL DAILY
     Route: 065
  22. TINZAPARIN [Concomitant]
     Active Substance: TINZAPARIN
     Dosage: 3500 UNITS TOTAL DAILY DOSE ()
  23. LISINOPRIL. [Suspect]
     Active Substance: LISINOPRIL
     Indication: HYPERTENSION
     Dosage: 40 MILLIGRAM DAILY;
     Route: 048
     Dates: end: 20150610
  24. NAPROXEN. [Suspect]
     Active Substance: NAPROXEN
     Dosage: 1000 MILLIGRAM DAILY;
     Route: 065
     Dates: start: 20150521, end: 20150528

REACTIONS (4)
  - Dizziness [Unknown]
  - Acute kidney injury [Recovered/Resolved]
  - Oedema peripheral [Recovered/Resolved]
  - Drug ineffective [Unknown]

NARRATIVE: CASE EVENT DATE: 20150701
